FAERS Safety Report 4886999-8 (Version None)
Quarter: 2006Q1

REPORT INFORMATION
  Report Type: 
  Country: None (occurrence: None)
  Receive Date: 20060120
  Receipt Date: 20051005
  Transmission Date: 20060701
  Serious: Yes (Death)
  Sender: FDA-Public Use
  Company Number: US-MERCK-0510USA05552

PATIENT
  Age: 53 Year
  Sex: Male

DRUGS (1)
  1. VIOXX [Suspect]
     Indication: ARTHRALGIA
     Route: 048
     Dates: start: 20031101, end: 20041001

REACTIONS (6)
  - ANEURYSM [None]
  - CARDIOVASCULAR DISORDER [None]
  - CHEST PAIN [None]
  - DEATH [None]
  - DYSPNOEA [None]
  - EMOTIONAL DISORDER [None]
